FAERS Safety Report 23511045 (Version 1)
Quarter: 2024Q1

REPORT INFORMATION
  Report Type: Spontaneous
  Country: PR (occurrence: PR)
  Receive Date: 20240212
  Receipt Date: 20240212
  Transmission Date: 20240410
  Serious: No
  Sender: FDA-Public Use
  Company Number: PR-ABBVIE-5631497

PATIENT
  Age: 32 Year
  Sex: Male

DRUGS (1)
  1. VRAYLAR [Suspect]
     Active Substance: CARIPRAZINE
     Indication: Product used for unknown indication
     Dosage: FORM STRENGTH: 1.5 MG
     Route: 048

REACTIONS (1)
  - Akathisia [Recovered/Resolved]
